FAERS Safety Report 15593608 (Version 2)
Quarter: 2021Q1

REPORT INFORMATION
  Report Type: Spontaneous
  Country: US (occurrence: US)
  Receive Date: 20181106
  Receipt Date: 20210208
  Transmission Date: 20210419
  Serious: Yes (Hospitalization, Other)
  Sender: FDA-Public Use
  Company Number: US-PFIZER INC-2018455280

PATIENT
  Age: 60 Year
  Sex: Female

DRUGS (2)
  1. XELJANZ [Suspect]
     Active Substance: TOFACITINIB CITRATE
     Indication: RHEUMATOID ARTHRITIS
     Dosage: 5 MG, 2X/DAY
  2. XELJANZ [Suspect]
     Active Substance: TOFACITINIB CITRATE
     Dosage: 5 MG, 3X/DAY (ONE TABLET, THREE TIMES DAILY)
     Route: 048

REACTIONS (8)
  - Pneumonia [Unknown]
  - Off label use [Unknown]
  - Dyspnoea [Unknown]
  - Gait disturbance [Unknown]
  - Renal disorder [Unknown]
  - Alopecia [Unknown]
  - Dehydration [Unknown]
  - Thinking abnormal [Unknown]
